FAERS Safety Report 11227431 (Version 1)
Quarter: 2015Q2

REPORT INFORMATION
  Report Type: Report from Study
  Country: BR (occurrence: BR)
  Receive Date: 20150630
  Receipt Date: 20150630
  Transmission Date: 20150821
  Serious: Yes (Hospitalization, Other)
  Sender: FDA-Public Use
  Company Number: BR-ROCHE-1599496

PATIENT
  Sex: Male
  Weight: 34 kg

DRUGS (14)
  1. TOBRAMYCIN. [Suspect]
     Active Substance: TOBRAMYCIN
     Indication: PSEUDOMONAS INFECTION
     Route: 065
  2. CREON [Concomitant]
     Active Substance: PANCRELIPASE AMYLASE\PANCRELIPASE LIPASE\PANCRELIPASE PROTEASE
     Indication: PRODUCT USED FOR UNKNOWN INDICATION
  3. CARBAMAZEPINE. [Concomitant]
     Active Substance: CARBAMAZEPINE
  4. BEROTEC [Concomitant]
     Active Substance: FENOTEROL HYDROBROMIDE
  5. RISPERIDONE. [Concomitant]
     Active Substance: RISPERIDONE
  6. AZITHROMYCIN [Concomitant]
     Active Substance: AZITHROMYCIN ANHYDROUS
     Route: 065
  7. SINGULAIR [Concomitant]
     Active Substance: MONTELUKAST SODIUM
     Route: 065
  8. COLISTIN [Concomitant]
     Active Substance: COLISTIN
  9. PULMOZYME [Suspect]
     Active Substance: DORNASE ALFA
     Indication: CYSTIC FIBROSIS
     Route: 065
  10. TOPIRAMATE. [Concomitant]
     Active Substance: TOPIRAMATE
  11. COLOMYCIN [Concomitant]
     Active Substance: COLISTIN
  12. URSACOL [Concomitant]
     Active Substance: URSODIOL
  13. DIAZEPAM. [Concomitant]
     Active Substance: DIAZEPAM
  14. AQUADEKS [Concomitant]

REACTIONS (4)
  - Renal impairment [Unknown]
  - Staphylococcal infection [Not Recovered/Not Resolved]
  - Burkholderia cepacia complex infection [Not Recovered/Not Resolved]
  - Pseudomonas infection [Not Recovered/Not Resolved]
